FAERS Safety Report 8330864-0 (Version None)
Quarter: 2012Q2

REPORT INFORMATION
  Report Type: 
  Country: None (occurrence: None)
  Receive Date: 20120502
  Receipt Date: 20120326
  Transmission Date: 20120825
  Serious: Yes (Other)
  Sender: FDA-Public Use
  Company Number: US-AMGEN-USASP2012021039

PATIENT
  Age: 69 Year
  Sex: Female

DRUGS (7)
  1. ETODOLAC [Concomitant]
     Dosage: 300 MG, 2X/DAY
  2. METHOTREXATE [Suspect]
     Dosage: 15 MG, WEEKLY
     Dates: start: 19940101
  3. SIMVASTATIN [Concomitant]
     Dosage: 20 MG, UNK
  4. ENALAPRIL MALEATE [Concomitant]
     Dosage: 20 MG, UNK
  5. ENBREL [Suspect]
     Indication: RHEUMATOID ARTHRITIS
     Dosage: 50 MG, WEEKLY
     Route: 058
     Dates: start: 20040101
  6. FOLIC ACID [Concomitant]
     Dosage: 1 MG, UNK
  7. RISEDRONATE SODIUM [Concomitant]
     Dosage: 35 MG, WEEKLY

REACTIONS (1)
  - NON-HODGKIN'S LYMPHOMA [None]
